FAERS Safety Report 12184624 (Version 1)
Quarter: 2016Q1

REPORT INFORMATION
  Report Type: Report from Study
  Country: CA (occurrence: CA)
  Receive Date: 20160316
  Receipt Date: 20160316
  Transmission Date: 20160526
  Serious: Yes (Hospitalization, Other)
  Sender: FDA-Public Use
  Company Number: CA-JNJFOC-20160310811

PATIENT
  Age: 60 Year
  Sex: Female
  Weight: 107.5 kg

DRUGS (25)
  1. REMICADE [Suspect]
     Active Substance: INFLIXIMAB
     Indication: RHEUMATOID ARTHRITIS
     Route: 042
     Dates: start: 20150513
  2. BISOPROLOL [Concomitant]
     Active Substance: BISOPROLOL
     Route: 065
     Dates: start: 20150506
  3. ZENHALE [Concomitant]
     Active Substance: FORMOTEROL FUMARATE\MOMETASONE FUROATE
     Dosage: 5MCG-10MCG. TAKE 1 PUFF THROUGH MOUTH 2 TIMES A DAY IN THE MORNING AND EVENING
     Route: 065
     Dates: start: 20150407
  4. TOPIRAMATE. [Concomitant]
     Active Substance: TOPIRAMATE
     Dosage: TAKE 1 TAB ONCE A DAY IN THE AFTERNOON AND 1 TAB OF 50MG IN THE MORNING FOR 1 MONTH
     Route: 048
     Dates: start: 20150514
  5. PREDNISONE. [Concomitant]
     Active Substance: PREDNISONE
     Dosage: TAKE 1 TAB ONCE A DAY IN THE MORNING
     Route: 065
     Dates: start: 20150506
  6. METHOTREXATE [Concomitant]
     Active Substance: METHOTREXATE
     Route: 065
     Dates: start: 201511
  7. APO-AMITRIPTYLINE [Concomitant]
     Active Substance: AMITRIPTYLINE HYDROCHLORIDE
     Indication: PAIN
     Route: 065
     Dates: start: 20150423
  8. REMICADE [Suspect]
     Active Substance: INFLIXIMAB
     Indication: RHEUMATOID ARTHRITIS
     Route: 042
     Dates: start: 20090212
  9. ROSUVASTATIN [Concomitant]
     Active Substance: ROSUVASTATIN
     Route: 065
     Dates: start: 20150423
  10. NASONEX [Concomitant]
     Active Substance: MOMETASONE FUROATE
     Dosage: 2 SPRAY IN EACH NOSTRIL ONCE A DAY IN THE MORNING
     Route: 065
     Dates: start: 20150416
  11. PMS-TOPIRAMATE [Concomitant]
     Active Substance: TOPIRAMATE
     Dosage: TAKE 1 TAB ONCE A DAY IN THE MORNING (WITH 1 TAB OF 100MG IN THE AFTERNOON) FOR 1 MONTH
     Route: 048
     Dates: start: 20150514
  12. SYNTHROID [Concomitant]
     Active Substance: LEVOTHYROXINE SODIUM
     Indication: THYROID DISORDER
     Dosage: TAKE 1 TAB ONCE A DAY IN THE MORNING ON A REGULAR BASIS
     Route: 065
     Dates: start: 20150506
  13. ASA [Concomitant]
     Active Substance: ASPIRIN
     Route: 065
     Dates: start: 20150423
  14. JAMP FOLIC ACID [Concomitant]
     Dosage: TAKE 1 TAB ONCE A DAY IN THE MORNING 6 DAYS A WEEK EXCEPT ON METHOTREXATE DAY.
     Route: 065
     Dates: start: 20150416
  15. VALSARTAN. [Concomitant]
     Active Substance: VALSARTAN
     Dosage: TAKE 1 TAB ONCE A DAY IN THE MORNING
     Route: 065
     Dates: start: 20150407
  16. REMICADE [Suspect]
     Active Substance: INFLIXIMAB
     Indication: RHEUMATOID ARTHRITIS
     Route: 042
     Dates: start: 20160308
  17. REMICADE [Suspect]
     Active Substance: INFLIXIMAB
     Indication: CROHN^S DISEASE
     Route: 042
     Dates: start: 20160308
  18. REMICADE [Suspect]
     Active Substance: INFLIXIMAB
     Indication: CROHN^S DISEASE
     Route: 042
     Dates: start: 20090212
  19. TOPIRAMATE. [Concomitant]
     Active Substance: TOPIRAMATE
     Dosage: TAKE 1 TAB ONCE A DAY IN THE AFTERNOON AND 1 TAB OF 50MG IN THE MORNING FOR 1 MONTH
     Route: 048
     Dates: start: 20150514
  20. RISEDRONATE [Concomitant]
     Active Substance: RISEDRONATE SODIUM
     Dosage: TAKE 1 TAB ONCE A WEEK 1/2 HOUR BEFORE BREAKFAST WITH A BIG GLASS OF WATER. DO NOT GO BACK TO BED
     Route: 065
     Dates: start: 20150506
  21. REMICADE [Suspect]
     Active Substance: INFLIXIMAB
     Indication: CROHN^S DISEASE
     Route: 042
     Dates: start: 20150513
  22. NOVO-GESIC [Concomitant]
     Indication: PAIN
     Dosage: AS NEEDED
     Route: 065
     Dates: start: 20150423
  23. DOCUSATE SODIUM. [Concomitant]
     Active Substance: DOCUSATE SODIUM
     Indication: CONSTIPATION
     Route: 065
     Dates: start: 20150416
  24. HYDROVAL [Concomitant]
     Active Substance: HYDROCORTISONE VALERATE
     Dosage: LOCAL APPLICATION 2 TIMES A DAY - THIN LAYER IF NEEDED
     Route: 065
     Dates: start: 20150402
  25. SULFASALAZINE. [Concomitant]
     Active Substance: SULFASALAZINE
     Dosage: TAKE 2 TABS 2 TIMES A DAY IN THE MORNING AND EVENING
     Route: 065
     Dates: start: 20150402

REACTIONS (4)
  - Atrial fibrillation [Unknown]
  - Off label use [Unknown]
  - Product use issue [Unknown]
  - Infusion related reaction [Unknown]

NARRATIVE: CASE EVENT DATE: 20090212
